FAERS Safety Report 7808388-6 (Version None)
Quarter: 2011Q4

REPORT INFORMATION
  Report Type: 
  Country: None (occurrence: None)
  Receive Date: 20111011
  Receipt Date: 20111011
  Transmission Date: 20120403
  Serious: No
  Sender: FDA-Public Use
  Company Number: None

PATIENT
  Sex: Female

DRUGS (1)
  1. ENBREL [Suspect]
     Indication: RHEUMATOID ARTHRITIS
     Dosage: 50MG QW SQ
     Route: 058
     Dates: start: 20110810, end: 20110929

REACTIONS (6)
  - ABDOMINAL DISTENSION [None]
  - INJECTION SITE REACTION [None]
  - WEIGHT INCREASED [None]
  - OEDEMA PERIPHERAL [None]
  - DIARRHOEA [None]
  - DECREASED APPETITE [None]
